FAERS Safety Report 25780750 (Version 1)
Quarter: 2025Q3

REPORT INFORMATION
  Report Type: Report from Study
  Country: EU (occurrence: EU)
  Receive Date: 20250909
  Receipt Date: 20250909
  Transmission Date: 20251020
  Serious: Yes (Hospitalization)
  Sender: ABBVIE
  Company Number: EU-ABBVIE-6446982

PATIENT
  Age: 27 Year
  Sex: Female
  Weight: 135 kg

DRUGS (2)
  1. SKYRIZI [Suspect]
     Active Substance: RISANKIZUMAB-RZAA
     Indication: Psoriasis
     Route: 058
     Dates: start: 20200603
  2. SKYRIZI [Suspect]
     Active Substance: RISANKIZUMAB-RZAA
     Indication: Psoriatic arthropathy

REACTIONS (4)
  - Hepatic steatosis [Recovered/Resolved]
  - Obesity [Recovered/Resolved]
  - Autoimmune thyroiditis [Unknown]
  - Hypertension [Unknown]

NARRATIVE: CASE EVENT DATE: 20240813
